FAERS Safety Report 10738495 (Version 1)
Quarter: 2015Q1

REPORT INFORMATION
  Report Type: Spontaneous
  Country: US (occurrence: None)
  Receive Date: 20150112
  Receipt Date: 20150112
  Transmission Date: 20150721
  Serious: Yes (Other)
  Sender: FDA-Public Use
  Company Number: 1337530

PATIENT
  Age: 56 Year

DRUGS (4)
  1. HEPARIN [Suspect]
     Active Substance: HEPARIN SODIUM
     Indication: DEEP VEIN THROMBOSIS
     Dosage: 500 U/H, (NOT OTHERWISE SPECIFIED)
     Route: 042
  2. ALTEPLASE (ALTEPLASE) [Suspect]
     Active Substance: ALTEPLASE
     Indication: THROMBOSIS IN DEVICE
  3. ALTEPLASE (ALTEPLASE) [Suspect]
     Active Substance: ALTEPLASE
     Indication: DEEP VEIN THROMBOSIS
  4. HEPARIN [Suspect]
     Active Substance: HEPARIN SODIUM
     Indication: THROMBOSIS IN DEVICE
     Dosage: 500 U/H, (NOT OTHERWISE SPECIFIED)
     Route: 042

REACTIONS (1)
  - Hypofibrinogenaemia [None]
